FAERS Safety Report 15939119 (Version 3)
Quarter: 2019Q2

REPORT INFORMATION
  Report Type: Spontaneous
  Country: US (occurrence: US)
  Receive Date: 20190208
  Receipt Date: 20190423
  Transmission Date: 20190711
  Serious: Yes (Other)
  Sender: FDA-Public Use
  Company Number: US-ASTRAZENECA-2018SF20987

PATIENT
  Age: 26443 Day
  Sex: Male

DRUGS (21)
  1. PRILOSEC [Suspect]
     Active Substance: OMEPRAZOLE MAGNESIUM
     Route: 048
     Dates: start: 201002, end: 201002
  2. DIGOXIN. [Concomitant]
     Active Substance: DIGOXIN
  3. NEXIUM [Suspect]
     Active Substance: ESOMEPRAZOLE MAGNESIUM
     Route: 048
     Dates: start: 20010220, end: 20100101
  4. PROTONIX [Suspect]
     Active Substance: PANTOPRAZOLE SODIUM
     Route: 065
  5. PROTONIX [Suspect]
     Active Substance: PANTOPRAZOLE SODIUM
     Route: 065
     Dates: start: 20100201
  6. ZOLPIDEM [Concomitant]
     Active Substance: ZOLPIDEM\ZOLPIDEM TARTRATE
  7. NIFEDIPINE. [Concomitant]
     Active Substance: NIFEDIPINE
  8. NEXIUM [Suspect]
     Active Substance: ESOMEPRAZOLE MAGNESIUM
     Route: 048
     Dates: start: 201002, end: 201002
  9. PROTONIX [Suspect]
     Active Substance: PANTOPRAZOLE SODIUM
     Route: 065
     Dates: start: 201002, end: 201002
  10. CARVEDILOL. [Concomitant]
     Active Substance: CARVEDILOL
  11. VENTOLIN [Concomitant]
     Active Substance: ALBUTEROL SULFATE
  12. ATORVASTATIN [Concomitant]
     Active Substance: ATORVASTATIN
  13. FLUTICASONE. [Concomitant]
     Active Substance: FLUTICASONE
  14. ITRACONAZOLE. [Concomitant]
     Active Substance: ITRACONAZOLE
  15. AMLODIPINE [Concomitant]
     Active Substance: AMLODIPINE BESYLATE
  16. METOPROLOL TARTRATE. [Concomitant]
     Active Substance: METOPROLOL TARTRATE
  17. FUROSEMIDE. [Concomitant]
     Active Substance: FUROSEMIDE
  18. PRILOSEC [Suspect]
     Active Substance: OMEPRAZOLE MAGNESIUM
     Route: 048
     Dates: start: 19890914, end: 20100101
  19. SUMATRIPTAN. [Concomitant]
     Active Substance: SUMATRIPTAN
  20. SIMVASTATIN. [Concomitant]
     Active Substance: SIMVASTATIN
  21. GABAPENTIN. [Concomitant]
     Active Substance: GABAPENTIN
     Dosage: 300.0MG UNKNOWN

REACTIONS (5)
  - Chronic kidney disease [Not Recovered/Not Resolved]
  - Nephrogenic anaemia [Unknown]
  - Acute kidney injury [Not Recovered/Not Resolved]
  - End stage renal disease [Not Recovered/Not Resolved]
  - Renal injury [Unknown]

NARRATIVE: CASE EVENT DATE: 20090101
